FAERS Safety Report 4664506-2 (Version None)
Quarter: 2005Q2

REPORT INFORMATION
  Report Type: 
  Country: None (occurrence: None)
  Receive Date: 20050516
  Receipt Date: 20050516
  Transmission Date: 20051028
  Serious: No
  Sender: FDA-Public Use
  Company Number: None

PATIENT
  Age: 42 Year
  Sex: Male
  Weight: 81.6475 kg

DRUGS (3)
  1. ACULAR LS [Suspect]
     Indication: CORNEAL ABRASION
     Dosage: QID OD X 1 WK
  2. VIGAMOX [Concomitant]
  3. DOXYCYCLINE [Concomitant]

REACTIONS (4)
  - CONJUNCTIVAL HYPERAEMIA [None]
  - CORNEAL ULCER [None]
  - NEOVASCULARISATION [None]
  - TREATMENT NONCOMPLIANCE [None]
